FAERS Safety Report 9904506 (Version 3)
Quarter: 2015Q3

REPORT INFORMATION
  Report Type: Spontaneous
  Country: GB (occurrence: GB)
  Receive Date: 20140218
  Receipt Date: 20150911
  Transmission Date: 20151125
  Serious: Yes (Other)
  Sender: FDA-Public Use
  Company Number: GB-ROCHE-1351063

PATIENT
  Sex: Female

DRUGS (1)
  1. HERCEPTIN [Suspect]
     Active Substance: TRASTUZUMAB
     Indication: PRODUCT USED FOR UNKNOWN INDICATION
     Dosage: CYCLE 35
     Route: 058

REACTIONS (7)
  - Night sweats [Not Recovered/Not Resolved]
  - Sensory disturbance [Unknown]
  - Joint range of motion decreased [Unknown]
  - Asthenia [Unknown]
  - Pain [Unknown]
  - Lymphoedema [Unknown]
  - Pain in extremity [Not Recovered/Not Resolved]
